FAERS Safety Report 24985532 (Version 1)
Quarter: 2025Q1

REPORT INFORMATION
  Report Type: Report from Study
  Country: US (occurrence: US)
  Receive Date: 20250219
  Receipt Date: 20250219
  Transmission Date: 20250408
  Serious: Yes (Other)
  Sender: ALEXION PHARMACEUTICALS
  Company Number: US-AstraZeneca-2014SE99536

PATIENT
  Age: 66 Year

DRUGS (2)
  1. NEXIUM [Suspect]
     Active Substance: ESOMEPRAZOLE MAGNESIUM
     Indication: Gastrooesophageal reflux disease
     Dosage: 40 MILLIGRAM, QD
  2. CRESTOR [Suspect]
     Active Substance: ROSUVASTATIN CALCIUM
     Indication: Blood cholesterol increased
     Dosage: 20 MILLIGRAM, QD

REACTIONS (9)
  - Malaise [Not Recovered/Not Resolved]
  - Illness [Not Recovered/Not Resolved]
  - Diabetes mellitus [Unknown]
  - Thinking abnormal [Unknown]
  - Hypoacusis [Unknown]
  - Back pain [Unknown]
  - Blood cholesterol increased [Unknown]
  - Product dose omission issue [Not Recovered/Not Resolved]
  - Off label use [Recovered/Resolved]
